FAERS Safety Report 24019363 (Version 1)
Quarter: 2024Q2

REPORT INFORMATION
  Report Type: Spontaneous
  Country: US (occurrence: US)
  Receive Date: 20240627
  Receipt Date: 20240627
  Transmission Date: 20240715
  Serious: Yes (Other)
  Sender: FDA-Public Use
  Company Number: US-AMGEN-USASP2024124744

PATIENT
  Sex: Male

DRUGS (5)
  1. REPATHA [Suspect]
     Active Substance: EVOLOCUMAB
     Indication: Product used for unknown indication
     Dosage: UNK
     Route: 065
  2. REPATHA [Suspect]
     Active Substance: EVOLOCUMAB
     Dosage: 140 MILLIGRAM, Q2WK
     Route: 058
  3. REPATHA [Suspect]
     Active Substance: EVOLOCUMAB
     Dosage: 140 MILLIGRAM, Q2WK
     Route: 058
  4. PRALUENT [Concomitant]
     Active Substance: ALIROCUMAB
     Indication: Product used for unknown indication
     Route: 058
  5. PRALUENT [Concomitant]
     Active Substance: ALIROCUMAB
     Dosage: UNK
     Route: 065

REACTIONS (6)
  - Hip arthroplasty [Unknown]
  - Incorrect route of product administration [Unknown]
  - Feeling abnormal [Unknown]
  - Rash [Recovered/Resolved]
  - Pain [Recovering/Resolving]
  - Product label confusion [Unknown]

NARRATIVE: CASE EVENT DATE: 20240501
